FAERS Safety Report 6516462-X (Version None)
Quarter: 2009Q4

REPORT INFORMATION
  Report Type: 
  Country: None (occurrence: None)
  Receive Date: 20091216
  Receipt Date: 20090821
  Transmission Date: 20100525
  Serious: Yes (Other)
  Sender: FDA-Public Use
  Company Number: 2009NI0190

PATIENT
  Age: 54 Year
  Sex: Male

DRUGS (1)
  1. NITROLINGUAL PUMPSPRAY [Suspect]
     Indication: ANGINA PECTORIS
     Dosage: 400MCG PER SPRAY, AS NEEDED
     Dates: end: 20090101

REACTIONS (1)
  - DRUG INEFFECTIVE [None]
